FAERS Safety Report 5089708-5 (Version None)
Quarter: 2006Q3

REPORT INFORMATION
  Report Type: 
  Country: None (occurrence: None)
  Receive Date: 20060817
  Receipt Date: 20060807
  Transmission Date: 20061208
  Serious: No
  Sender: FDA-Public Use
  Company Number: 060728-0000741

PATIENT
  Sex: Female

DRUGS (2)
  1. PANHEMATIN [Suspect]
     Indication: PORPHYRIA ACUTE
     Dosage: 180 MG; BIW; IV
     Route: 042
     Dates: start: 20030101
  2. MORPHINE [Concomitant]

REACTIONS (3)
  - CATHETER RELATED COMPLICATION [None]
  - PLATELET COUNT DECREASED [None]
  - SERUM FERRITIN INCREASED [None]
